FAERS Safety Report 6410572-3 (Version None)
Quarter: 2009Q4

REPORT INFORMATION
  Report Type: 
  Country: None (occurrence: None)
  Receive Date: 20091022
  Receipt Date: 20091014
  Transmission Date: 20100525
  Serious: Yes (Other)
  Sender: FDA-Public Use
  Company Number: JP-ASTRAZENECA-2009SE13153

PATIENT
  Age: 915 Month
  Sex: Female
  Weight: 72 kg

DRUGS (1)
  1. BLOPRESS [Suspect]
     Indication: HYPERTENSION
     Route: 048
     Dates: start: 20090701

REACTIONS (6)
  - HEADACHE [None]
  - INCONTINENCE [None]
  - MICTURITION URGENCY [None]
  - PAIN IN EXTREMITY [None]
  - PRURITUS GENITAL [None]
  - URTICARIA [None]
